FAERS Safety Report 22361385 (Version 1)
Quarter: 2023Q2

REPORT INFORMATION
  Report Type: Spontaneous
  Country: US (occurrence: None)
  Receive Date: 20230523
  Receipt Date: 20230523
  Transmission Date: 20230722
  Serious: Yes (Hospitalization)
  Sender: FDA-Public Use
  Company Number: None

PATIENT
  Sex: Female

DRUGS (3)
  1. RINVOQ [Suspect]
     Active Substance: UPADACITINIB
     Indication: Rheumatoid arthritis
     Dosage: FREQUENCY : DAILY;?
     Route: 048
     Dates: start: 20210211
  2. RINVOQ [Suspect]
     Active Substance: UPADACITINIB
     Dosage: FREQUENCY : DAILY;?
     Route: 048
  3. PREDNISONE [Concomitant]
     Active Substance: PREDNISONE

REACTIONS (7)
  - Rheumatoid arthritis [None]
  - Arthralgia [None]
  - Headache [None]
  - Stress [None]
  - Infection [None]
  - Therapy interrupted [None]
  - Loss of personal independence in daily activities [None]
